FAERS Safety Report 4398980-6 (Version None)
Quarter: 2004Q3

REPORT INFORMATION
  Report Type: 
  Country: None (occurrence: None)
  Receive Date: 20040712
  Receipt Date: 20040617
  Transmission Date: 20050211
  Serious: Yes (Hospitalization)
  Sender: FDA-Public Use
  Company Number: USA040670467

PATIENT
  Age: 86 Year
  Sex: Female

DRUGS (1)
  1. ZYPREXA [Suspect]
     Indication: HALLUCINATION
     Dosage: 2.5 MG/1 IN THE EVENING
     Dates: start: 20010101

REACTIONS (4)
  - CHOLELITHIASIS [None]
  - DRUG INEFFECTIVE [None]
  - SOMNOLENCE [None]
  - SPLENOMEGALY [None]
